FAERS Safety Report 4950004-5 (Version None)
Quarter: 2006Q1

REPORT INFORMATION
  Report Type: 
  Country: None (occurrence: None)
  Receive Date: 20060315
  Receipt Date: 20060302
  Transmission Date: 20060701
  Serious: Yes (Death, Life-Threatening)
  Sender: FDA-Public Use
  Company Number: 2006032602

PATIENT
  Age: 80 Year
  Sex: Male

DRUGS (1)
  1. SULPERAZON (SULBACTAM, CEFOPERAZONE) [Suspect]
     Indication: LUNG INFECTION
     Dosage: 2 GRAM, 2 IN 1 D, INTRAVENOUS
     Route: 042
     Dates: start: 20060101, end: 20060101

REACTIONS (1)
  - CARDIAC FAILURE ACUTE [None]
